FAERS Safety Report 12443457 (Version 1)
Quarter: 2016Q2

REPORT INFORMATION
  Report Type: Report from Study
  Country: US (occurrence: US)
  Receive Date: 20160607
  Receipt Date: 20160607
  Transmission Date: 20160815
  Serious: Yes (Hospitalization, Other)
  Sender: FDA-Public Use
  Company Number: US-GILEAD-2016-0216958

PATIENT
  Age: 64 Year
  Sex: Female

DRUGS (2)
  1. RANOLAZINE [Suspect]
     Active Substance: RANOLAZINE
     Indication: ANGINA PECTORIS
     Dosage: 500 MG, UNK
     Route: 048
     Dates: start: 20151210, end: 20151229
  2. RANOLAZINE [Suspect]
     Active Substance: RANOLAZINE
     Dosage: 1000 MG, UNK
     Route: 048
     Dates: start: 20151229

REACTIONS (8)
  - Dyspnoea [Unknown]
  - Carotid artery disease [Unknown]
  - Neuropathy peripheral [Unknown]
  - Hypertension [Unknown]
  - Diabetes mellitus [Unknown]
  - Intervertebral disc disorder [Unknown]
  - Hypotension [Unknown]
  - Dyslipidaemia [Unknown]
